FAERS Safety Report 4667683-2 (Version None)
Quarter: 2005Q2

REPORT INFORMATION
  Report Type: 
  Country: None (occurrence: None)
  Receive Date: 20050520
  Receipt Date: 20050511
  Transmission Date: 20051028
  Serious: Yes (Hospitalization, Other)
  Sender: FDA-Public Use
  Company Number: GB-JNJFOC-20050502487

PATIENT
  Sex: Female
  Weight: 76 kg

DRUGS (10)
  1. REMICADE [Suspect]
     Route: 042
  2. METHOTREXATE [Concomitant]
  3. PREDNISOLONE [Concomitant]
  4. ALENDRONATE SODIUM [Concomitant]
  5. FERROUS SULFATE TAB [Concomitant]
  6. THYROXINE [Concomitant]
  7. BENDROFLUAZIDE [Concomitant]
  8. CELECOXIB [Concomitant]
  9. AMYTRIPTYLINE [Concomitant]
  10. ATENOLOL [Concomitant]

REACTIONS (2)
  - MUSCULAR WEAKNESS [None]
  - VASCULITIS [None]
